FAERS Safety Report 9472643 (Version 1)
Quarter: 2013Q3

REPORT INFORMATION
  Report Type: Report from Study
  Country: VE (occurrence: VE)
  Receive Date: 20130823
  Receipt Date: 20130823
  Transmission Date: 20140515
  Serious: Yes (Other)
  Sender: FDA-Public Use
  Company Number: VE-ROCHE-1264339

PATIENT
  Age: 37 Year
  Sex: Female

DRUGS (7)
  1. XOLAIR [Suspect]
     Indication: ASTHMA
     Route: 058
     Dates: start: 201211, end: 201304
  2. XOLAIR [Suspect]
     Route: 065
     Dates: start: 201306
  3. BUDESONIDE [Concomitant]
  4. AMBROXOL ACEFYLLINATE [Concomitant]
  5. NEXIUM [Concomitant]
  6. AMOXICILLIN TRIHYDRATE [Concomitant]
  7. CLARITHROMYCIN [Concomitant]

REACTIONS (1)
  - Hypertension [Recovered/Resolved]
